FAERS Safety Report 8583737-2 (Version None)
Quarter: 2012Q3

REPORT INFORMATION
  Report Type: 
  Country: None (occurrence: None)
  Receive Date: 20120810
  Receipt Date: 20120724
  Transmission Date: 20120928
  Serious: Yes (Other)
  Sender: FDA-Public Use
  Company Number: US-009507513-1207USA010883

PATIENT

DRUGS (8)
  1. BLINDED POST TRIAL THERAPY [Suspect]
     Indication: BIPOLAR I DISORDER
     Dosage: 10 MG, BID
     Route: 048
     Dates: start: 20120615, end: 20120714
  2. COGENTIN [Concomitant]
     Indication: AKATHISIA
     Dosage: 1.0 MG, HS
     Route: 048
     Dates: start: 20120724
  3. BLINDED PRE TRIAL THERAPY [Suspect]
     Indication: BIPOLAR I DISORDER
     Dosage: 10 MG, BID
     Route: 048
     Dates: start: 20120615, end: 20120714
  4. XANAX [Concomitant]
     Indication: ANXIETY
     Dosage: 0.5 MG, PRN
     Route: 048
     Dates: start: 20120530
  5. BLINDED ASENAPINE MALEATE-BIPOLAR DISORDER [Suspect]
     Indication: BIPOLAR I DISORDER
     Dosage: 10 MG, BID
     Route: 048
     Dates: start: 20120615, end: 20120714
  6. PLACEBO [Suspect]
     Indication: BIPOLAR I DISORDER
     Dosage: 10 MG, BID
     Route: 048
     Dates: start: 20120615, end: 20120714
  7. SYNTHROID [Concomitant]
     Indication: HYPOTHYROIDISM
     Dosage: 0.05 MG, UNK
     Route: 048
     Dates: start: 20120301
  8. ZOTRAN [Concomitant]
     Indication: NAUSEA
     Dosage: 4 MG, QD
     Route: 048
     Dates: start: 20120719

REACTIONS (1)
  - ABDOMINAL PAIN [None]
